FAERS Safety Report 10271388 (Version 1)
Quarter: 2014Q3

REPORT INFORMATION
  Report Type: Spontaneous
  Country: GB (occurrence: GB)
  Receive Date: 20140701
  Receipt Date: 20140701
  Transmission Date: 20150326
  Serious: Yes (Other)
  Sender: FDA-Public Use
  Company Number: GB-WATSON-2014-13989

PATIENT
  Age: 73 Year
  Sex: Male

DRUGS (4)
  1. DIAZEPAM (UNKNOWN) [Suspect]
     Active Substance: DIAZEPAM
     Indication: MUSCLE SPASMS
     Dosage: UNK UNK, BID
     Route: 048
     Dates: start: 20140412
  2. COCODAMOL [Suspect]
     Active Substance: ACETAMINOPHEN\CODEINE PHOSPHATE
     Indication: MUSCLE SPASMS
     Dosage: UNK UNK, QID - 30/500
     Route: 048
     Dates: start: 20140412
  3. FELDENE [Concomitant]
     Active Substance: PIROXICAM
     Indication: MUSCLE SPASMS
     Dosage: UNK
     Route: 061
     Dates: start: 20140411
  4. MOXONIDINE (UNKNOWN) [Suspect]
     Active Substance: MOXONIDINE
     Indication: PRODUCT USED FOR UNKNOWN INDICATION
     Dosage: UNK
     Route: 065

REACTIONS (1)
  - Loss of consciousness [Unknown]

NARRATIVE: CASE EVENT DATE: 20140412
